FAERS Safety Report 16117310 (Version 9)
Quarter: 2024Q2

REPORT INFORMATION
  Report Type: Other
  Country: CA (occurrence: None)
  Receive Date: 20190326
  Receipt Date: 20240502
  Transmission Date: 20240715
  Serious: Yes (Hospitalization, Other)
  Sender: FDA-Public Use
  Company Number: CA-ROCHE-2286716

PATIENT
  Sex: Female

DRUGS (7)
  1. OCREVUS [Suspect]
     Active Substance: OCRELIZUMAB
     Indication: Relapsing-remitting multiple sclerosis
     Dosage: 300 MG AT DAY 0 AND 14, THEN 600 MG EVERY 6 MONTH ;ONGOING: YES
     Route: 042
     Dates: start: 20160901
  2. ZOLOFT [Concomitant]
     Active Substance: SERTRALINE HYDROCHLORIDE
  3. SEROQUEL [Concomitant]
     Active Substance: QUETIAPINE FUMARATE
  4. MIRENA [Concomitant]
     Active Substance: LEVONORGESTREL
  5. DOXYCYCLINE [Concomitant]
     Active Substance: DOXYCYCLINE
  6. CEPHALEXIN [Concomitant]
     Active Substance: CEPHALEXIN
  7. METRONIDAZOLE [Concomitant]
     Active Substance: METRONIDAZOLE

REACTIONS (16)
  - Fallopian tube abscess [Not Recovered/Not Resolved]
  - Pelvic inflammatory disease [Not Recovered/Not Resolved]
  - Cystitis [Recovered/Resolved]
  - Pyrexia [Unknown]
  - Productive cough [Not Recovered/Not Resolved]
  - Skin infection [Recovered/Resolved]
  - Bacterial vaginosis [Recovered/Resolved]
  - Pelvic pain [Not Recovered/Not Resolved]
  - Bladder spasm [Not Recovered/Not Resolved]
  - Asthenia [Not Recovered/Not Resolved]
  - Folliculitis [Not Recovered/Not Resolved]
  - Peripheral swelling [Not Recovered/Not Resolved]
  - Diarrhoea [Not Recovered/Not Resolved]
  - Constipation [Not Recovered/Not Resolved]
  - Psoriasis [Not Recovered/Not Resolved]
  - Hidradenitis [Not Recovered/Not Resolved]

NARRATIVE: CASE EVENT DATE: 20180101
